FAERS Safety Report 15090258 (Version 1)
Quarter: 2018Q2

REPORT INFORMATION
  Report Type: Spontaneous
  Country: US (occurrence: US)
  Receive Date: 20180629
  Receipt Date: 20180629
  Transmission Date: 20180711
  Serious: No
  Sender: FDA-Public Use
  Company Number: US-TEVA-2018-US-914099

PATIENT
  Age: 46 Year
  Sex: Female

DRUGS (2)
  1. CLARAVIS [Suspect]
     Active Substance: ISOTRETINOIN
     Indication: ACNE
     Dosage: 20 MILLIGRAM DAILY;
     Route: 065
     Dates: start: 201801
  2. CLARAVIS [Suspect]
     Active Substance: ISOTRETINOIN
     Dosage: 10 MILLIGRAM DAILY;
     Route: 065
     Dates: start: 2018

REACTIONS (2)
  - Cholelithiasis [Unknown]
  - Liver function test increased [Recovered/Resolved]

NARRATIVE: CASE EVENT DATE: 2018
